FAERS Safety Report 6893027-1 (Version None)
Quarter: 2010Q3

REPORT INFORMATION
  Report Type: 
  Country: None (occurrence: None)
  Receive Date: 20100731
  Receipt Date: 20090202
  Transmission Date: 20110219
  Serious: No
  Sender: FDA-Public Use
  Company Number: US-PFIZER INC-001-0945-M0200067

PATIENT
  Sex: Male
  Weight: 89 kg

DRUGS (14)
  1. NEURONTIN [Suspect]
     Indication: NEUROPATHY PERIPHERAL
     Dosage: 300 MG, 3X/DAY
     Route: 048
     Dates: start: 20020102, end: 20020103
  2. LYRICA [Suspect]
     Dosage: UNK
     Route: 065
  3. SYNTHROID [Concomitant]
     Route: 048
  4. ALLOPURINOL [Concomitant]
     Route: 048
  5. ZOLOFT [Concomitant]
     Route: 048
  6. AMLODIPINE [Concomitant]
     Route: 048
  7. CELEBREX [Concomitant]
     Route: 048
  8. ASPIRIN [Concomitant]
     Route: 048
  9. TYLENOL-500 [Concomitant]
     Route: 065
  10. ZYRTEC [Concomitant]
     Route: 065
  11. COENZYME Q10 [Concomitant]
     Route: 065
  12. CHONDROITIN/GLUCOSAMINE/METHYLSULFONYLMETHANE [Concomitant]
     Route: 065
  13. METOPROLOL TARTRATE [Concomitant]
     Route: 065
  14. ISOSORBIDE [Concomitant]
     Route: 065

REACTIONS (7)
  - ADVERSE EVENT [None]
  - BALANCE DISORDER [None]
  - CONFUSIONAL STATE [None]
  - DIZZINESS [None]
  - FATIGUE [None]
  - FEELING ABNORMAL [None]
  - NEUROPATHY PERIPHERAL [None]
